FAERS Safety Report 5992868-2 (Version None)
Quarter: 2008Q4

REPORT INFORMATION
  Report Type: 
  Country: None (occurrence: None)
  Receive Date: 20081212
  Receipt Date: 20081017
  Transmission Date: 20090506
  Serious: No
  Sender: FDA-Public Use
  Company Number: US-BAYER-200830561NA

PATIENT
  Age: 47 Year
  Sex: Male

DRUGS (2)
  1. ULTRAVIST (PHARMACY BULK) [Suspect]
     Indication: COMPUTERISED TOMOGRAM ABDOMEN
     Dosage: TOTAL DAILY DOSE: 100 ML
     Route: 042
     Dates: start: 20080723, end: 20080723
  2. HEPARIN [Concomitant]
     Route: 042

REACTIONS (3)
  - HYPOAESTHESIA ORAL [None]
  - PRURITUS [None]
  - RASH [None]
